FAERS Safety Report 5849041-8 (Version None)
Quarter: 2008Q3

REPORT INFORMATION
  Report Type: 
  Country: None (occurrence: None)
  Receive Date: 20080815
  Receipt Date: 20080811
  Transmission Date: 20090109
  Serious: Yes (Other)
  Sender: FDA-Public Use
  Company Number: SPV1-2008-01712

PATIENT
  Age: 9 Year
  Sex: Male
  Weight: 59 kg

DRUGS (4)
  1. ADDERALL XR 30 [Suspect]
     Indication: ATTENTION DEFICIT/HYPERACTIVITY DISORDER
     Dosage: 20 MG, 1X/DAY; QD, ORAL
     Route: 048
  2. ADDERALL XR 30 [Suspect]
     Indication: AUTISM
     Dosage: 20 MG, 1X/DAY; QD, ORAL
     Route: 048
  3. PALIPERIDONE (PALIPERIDONE) [Concomitant]
  4. PROZAC [Concomitant]

REACTIONS (4)
  - DECREASED APPETITE [None]
  - HOMICIDAL IDEATION [None]
  - SUICIDAL IDEATION [None]
  - UNDERWEIGHT [None]
